FAERS Safety Report 5093846-0 (Version None)
Quarter: 2006Q3

REPORT INFORMATION
  Report Type: 
  Country: None (occurrence: None)
  Receive Date: 20060831
  Receipt Date: 20060629
  Transmission Date: 20061208
  Serious: Yes (Death, Hospitalization, Other)
  Sender: FDA-Public Use
  Company Number: US-BAYER-200614398BWH

PATIENT
  Age: 80 Year
  Sex: Male
  Weight: 77 kg

DRUGS (4)
  1. NEXAVAR [Suspect]
     Indication: METASTATIC RENAL CELL CARCINOMA
     Dosage: TOTAL DAILY DOSE: 800 MG  UNIT DOSE: 200 MG
     Route: 048
     Dates: start: 20060612, end: 20060714
  2. COUMADIN [Interacting]
     Indication: ATRIAL FIBRILLATION
  3. ASPIRIN [Concomitant]
  4. ANTIHYPERTENSIVE THERAPY (NOS) [Concomitant]
     Indication: BLOOD PRESSURE INCREASED

REACTIONS (4)
  - BLOOD PRESSURE INCREASED [None]
  - CEREBROVASCULAR ACCIDENT [None]
  - DIARRHOEA [None]
  - PROTHROMBIN TIME PROLONGED [None]
